FAERS Safety Report 17421576 (Version 7)
Quarter: 2021Q3

REPORT INFORMATION
  Report Type: Spontaneous
  Country: US (occurrence: US)
  Receive Date: 20200214
  Receipt Date: 20210922
  Transmission Date: 20211014
  Serious: Yes (Other)
  Sender: FDA-Public Use
  Company Number: US-INCYTE CORPORATION-2020IN001185

PATIENT

DRUGS (22)
  1. TURMERIC [CURCUMA LONGA] [Concomitant]
     Active Substance: HERBALS\TURMERIC
     Indication: PRODUCT USED FOR UNKNOWN INDICATION
     Route: 065
  2. JAKAFI [Suspect]
     Active Substance: RUXOLITINIB
     Dosage: 10 MILLIGRAM, BID
     Route: 048
  3. VITAMIN D3 [Concomitant]
     Active Substance: CHOLECALCIFEROL
     Indication: PRODUCT USED FOR UNKNOWN INDICATION
     Route: 065
  4. ZINC. [Concomitant]
     Active Substance: ZINC
     Indication: PRODUCT USED FOR UNKNOWN INDICATION
     Route: 065
  5. ZOLPIDEM [Concomitant]
     Active Substance: ZOLPIDEM TARTRATE
     Indication: INSOMNIA
     Route: 065
  6. CYMBALTA [Concomitant]
     Active Substance: DULOXETINE HYDROCHLORIDE
     Indication: PRODUCT USED FOR UNKNOWN INDICATION
     Route: 065
  7. JAKAFI [Suspect]
     Active Substance: RUXOLITINIB
     Indication: POLYCYTHAEMIA VERA
     Dosage: 10 MILLIGRAM, BID
     Route: 048
     Dates: start: 20190925
  8. JAKAFI [Suspect]
     Active Substance: RUXOLITINIB
     Dosage: DOSE IN HALF
     Route: 065
     Dates: start: 20200127
  9. JAKAFI [Suspect]
     Active Substance: RUXOLITINIB
     Dosage: 10 MILLIGRAM, BID
     Route: 048
  10. ASPIRIN. [Concomitant]
     Active Substance: ASPIRIN
     Indication: PRODUCT USED FOR UNKNOWN INDICATION
     Route: 065
  11. GINKGO P [Concomitant]
     Indication: PRODUCT USED FOR UNKNOWN INDICATION
     Route: 065
  12. WELLBUTRIN [Concomitant]
     Active Substance: BUPROPION HYDROCHLORIDE
     Indication: PRODUCT USED FOR UNKNOWN INDICATION
     Route: 065
  13. JAKAFI [Suspect]
     Active Substance: RUXOLITINIB
     Dosage: 10 MILLIGRAM, BID
     Route: 048
  14. VITAMIN A [RETINOL] [Concomitant]
     Active Substance: RETINOL
     Indication: PRODUCT USED FOR UNKNOWN INDICATION
     Route: 065
  15. ASHWAGANDHA [WITHANIA SOMNIFERA] [Concomitant]
     Active Substance: HERBALS
     Indication: PRODUCT USED FOR UNKNOWN INDICATION
     Route: 065
  16. JAKAFI [Suspect]
     Active Substance: RUXOLITINIB
     Dosage: HALF A DOSE
     Route: 065
     Dates: start: 20200129
  17. JAKAFI [Suspect]
     Active Substance: RUXOLITINIB
     Dosage: 10 MILLIGRAM, BID
     Route: 048
     Dates: start: 20190926
  18. COENZYME Q10 [Concomitant]
     Active Substance: DIETARY SUPPLEMENT\UBIDECARENONE
     Indication: PRODUCT USED FOR UNKNOWN INDICATION
     Route: 065
  19. ESCITALOPRAM [Concomitant]
     Active Substance: ESCITALOPRAM OXALATE
     Indication: PRODUCT USED FOR UNKNOWN INDICATION
     Route: 065
  20. MAG OXIDE [Concomitant]
     Active Substance: MAGNESIUM OXIDE
     Indication: PRODUCT USED FOR UNKNOWN INDICATION
     Route: 065
  21. VITAMIN C [Concomitant]
     Active Substance: ASCORBIC ACID
     Indication: PRODUCT USED FOR UNKNOWN INDICATION
     Route: 065
  22. MIRTAZAPINE. [Concomitant]
     Active Substance: MIRTAZAPINE
     Indication: PRODUCT USED FOR UNKNOWN INDICATION
     Route: 065

REACTIONS (25)
  - Neoplasm malignant [Unknown]
  - Renal pain [Unknown]
  - Bone pain [Not Recovered/Not Resolved]
  - Haematocrit abnormal [Unknown]
  - Therapy interrupted [Unknown]
  - Product dose omission issue [Unknown]
  - Red blood cell count abnormal [Recovered/Resolved]
  - Lipids increased [Not Recovered/Not Resolved]
  - Abdominal pain upper [Unknown]
  - Fatigue [Not Recovered/Not Resolved]
  - Blood test abnormal [Recovering/Resolving]
  - Vision blurred [Unknown]
  - Hepatic enzyme increased [Unknown]
  - Platelet count increased [Not Recovered/Not Resolved]
  - Splenomegaly [Unknown]
  - Streptococcus test positive [Unknown]
  - Migraine with aura [Not Recovered/Not Resolved]
  - Blood iron decreased [Not Recovered/Not Resolved]
  - Product availability issue [Unknown]
  - Platelet count decreased [Unknown]
  - Dizziness [Unknown]
  - Underdose [Not Recovered/Not Resolved]
  - Hypercoagulation [Unknown]
  - White blood cell count abnormal [Unknown]
  - Renal disorder [Unknown]

NARRATIVE: CASE EVENT DATE: 2020
